FAERS Safety Report 7564307-1 (Version None)
Quarter: 2011Q2

REPORT INFORMATION
  Report Type: 
  Country: None (occurrence: None)
  Receive Date: 20110622
  Receipt Date: 20110422
  Transmission Date: 20111010
  Serious: No
  Sender: FDA-Public Use
  Company Number: US-ALLERGAN-1105687US

PATIENT
  Age: 67 Year
  Sex: Male

DRUGS (2)
  1. LUMIGAN [Suspect]
     Dosage: 4 GTT, SINGLE
  2. LUMIGAN [Suspect]
     Indication: INTRAOCULAR PRESSURE INCREASED
     Dosage: 8 GTT, SINGLE
     Dates: start: 20110421, end: 20110421

REACTIONS (2)
  - DRUG INEFFECTIVE [None]
  - INCORRECT DOSE ADMINISTERED [None]
